FAERS Safety Report 17980576 (Version 1)
Quarter: 2020Q3

REPORT INFORMATION
  Report Type: Spontaneous
  Country: IT (occurrence: IT)
  Receive Date: 20200704
  Receipt Date: 20200704
  Transmission Date: 20201103
  Serious: Yes (Hospitalization, Other)
  Sender: FDA-Public Use
  Company Number: IT-AUROBINDO-AUR-APL-2020-031856

PATIENT
  Age: 76 Year
  Sex: Female

DRUGS (1)
  1. KETOROLAC [Suspect]
     Active Substance: KETOROLAC TROMETHAMINE
     Indication: OSTEOARTHRITIS
     Dosage: UNK
     Route: 030

REACTIONS (7)
  - Injection site induration [Unknown]
  - Embolia cutis medicamentosa [Unknown]
  - Injection site necrosis [Recovered/Resolved with Sequelae]
  - Injection site pain [Unknown]
  - Ecchymosis [Recovered/Resolved with Sequelae]
  - Plastic surgery [Recovered/Resolved with Sequelae]
  - Pallor [Unknown]
